FAERS Safety Report 8387964-9 (Version None)
Quarter: 2012Q2

REPORT INFORMATION
  Report Type: 
  Country: None (occurrence: None)
  Receive Date: 20120525
  Receipt Date: 20120521
  Transmission Date: 20120825
  Serious: Yes (Other)
  Sender: FDA-Public Use
  Company Number: US-TEVA-339404USA

PATIENT
  Age: 8 Year
  Sex: Male

DRUGS (7)
  1. DEXTROMETHORPHAN HYDROBROMIDE [Suspect]
     Indication: NASOPHARYNGITIS
  2. METHYLPHENIDATE [Concomitant]
     Indication: ATTENTION DEFICIT/HYPERACTIVITY DISORDER
  3. CITALOPRAM HYDROBROMIDE [Suspect]
     Route: 065
  4. CLONIDINE [Concomitant]
     Indication: ATTENTION DEFICIT/HYPERACTIVITY DISORDER
  5. CITALOPRAM HYDROBROMIDE [Suspect]
     Indication: ATTENTION DEFICIT/HYPERACTIVITY DISORDER
  6. METHYLPHENIDATE [Concomitant]
     Indication: POST-TRAUMATIC STRESS DISORDER
     Route: 065
  7. CLONIDINE [Concomitant]
     Route: 065

REACTIONS (2)
  - ENCEPHALOPATHY [None]
  - SEROTONIN SYNDROME [None]
